FAERS Safety Report 4470237-4 (Version None)
Quarter: 2004Q4

REPORT INFORMATION
  Report Type: 
  Country: None (occurrence: None)
  Receive Date: 20041008
  Receipt Date: 20041005
  Transmission Date: 20050328
  Serious: Yes (Hospitalization)
  Sender: FDA-Public Use
  Company Number: AU-MERCK-0410AUS00068

PATIENT
  Age: 60 Year
  Sex: Female

DRUGS (4)
  1. ACETAMINOPHEN AND CODEINE PHOSPHATE [Concomitant]
     Route: 065
  2. ESTROGENS (UNSPECIFIED) [Concomitant]
     Route: 065
  3. HYDROCHLOROTHIAZIDE AND TRIAMTERENE [Concomitant]
     Route: 065
  4. VIOXX [Suspect]
     Indication: MONARTHRITIS
     Route: 048

REACTIONS (3)
  - ADHESION [None]
  - GASTRIC HAEMORRHAGE [None]
  - MYOCARDIAL INFARCTION [None]
